FAERS Safety Report 25312710 (Version 1)
Quarter: 2025Q2

REPORT INFORMATION
  Report Type: Spontaneous
  Country: GB (occurrence: GB)
  Receive Date: 20250514
  Receipt Date: 20250514
  Transmission Date: 20250716
  Serious: Yes (Other)
  Sender: RANBAXY
  Company Number: GB-ROCHE-10000124548

PATIENT
  Age: 34 Year
  Sex: Female

DRUGS (1)
  1. ISOTRETINOIN [Suspect]
     Active Substance: ISOTRETINOIN
     Indication: Acne
     Dosage: 20 MILLIGRAM, DAILY
     Route: 065
     Dates: start: 20240709, end: 20240722

REACTIONS (4)
  - Accidental exposure to product [Unknown]
  - Contraindicated product prescribed [Unknown]
  - Maternal exposure during pregnancy [Unknown]
  - No adverse event [Unknown]
